FAERS Safety Report 9764826 (Version 2)
Quarter: 2015Q3

REPORT INFORMATION
  Report Type: Spontaneous
  Country: US (occurrence: US)
  Receive Date: 20131217
  Receipt Date: 20150907
  Transmission Date: 20151125
  Serious: No
  Sender: FDA-Public Use
  Company Number: US-BIOGENIDEC-2013BI110434

PATIENT
  Age: 58 Year
  Sex: Female
  Weight: 52 kg

DRUGS (10)
  1. ATENOLOL. [Concomitant]
     Active Substance: ATENOLOL
     Indication: PRODUCT USED FOR UNKNOWN INDICATION
  2. COMBIVENT AER [Concomitant]
     Indication: PRODUCT USED FOR UNKNOWN INDICATION
  3. BACLOFEN. [Concomitant]
     Active Substance: BACLOFEN
     Indication: PRODUCT USED FOR UNKNOWN INDICATION
  4. VITAMIN D [Concomitant]
     Active Substance: CHOLECALCIFEROL
     Indication: PRODUCT USED FOR UNKNOWN INDICATION
  5. AMPYRA [Concomitant]
     Active Substance: DALFAMPRIDINE
     Indication: PRODUCT USED FOR UNKNOWN INDICATION
  6. TECFIDERA [Suspect]
     Active Substance: DIMETHYL FUMARATE
     Indication: PRODUCT USED FOR UNKNOWN INDICATION
     Dates: start: 201307
  7. NUEDEXTA [Concomitant]
     Active Substance: DEXTROMETHORPHAN HYDROBROMIDE\QUINIDINE SULFATE
     Indication: PRODUCT USED FOR UNKNOWN INDICATION
  8. GABAPENTIN. [Concomitant]
     Active Substance: GABAPENTIN
     Indication: PRODUCT USED FOR UNKNOWN INDICATION
  9. SINGULAIR [Concomitant]
     Active Substance: MONTELUKAST SODIUM
     Indication: PRODUCT USED FOR UNKNOWN INDICATION
  10. FOSAMAX [Concomitant]
     Active Substance: ALENDRONATE SODIUM
     Indication: PRODUCT USED FOR UNKNOWN INDICATION

REACTIONS (4)
  - Flatulence [Unknown]
  - Faeces soft [Unknown]
  - Nasopharyngitis [Unknown]
  - Sinusitis [Unknown]

NARRATIVE: CASE EVENT DATE: 201307
